FAERS Safety Report 5690658-1 (Version None)
Quarter: 2008Q1

REPORT INFORMATION
  Report Type: 
  Country: None (occurrence: None)
  Receive Date: 20080331
  Receipt Date: 20080331
  Transmission Date: 20080703
  Serious: Yes (Other)
  Sender: FDA-Public Use
  Company Number: None

PATIENT
  Sex: Female
  Weight: 50.8029 kg

DRUGS (1)
  1. SINGULAIR [Suspect]
     Indication: SEASONAL ALLERGY
     Dosage: 10MG 1/DAY IN MORNING PO
     Route: 048
     Dates: start: 20080127, end: 20080326

REACTIONS (29)
  - ABNORMAL BEHAVIOUR [None]
  - AMNESIA [None]
  - ANEURYSM [None]
  - ANXIETY [None]
  - APATHY [None]
  - BRAIN NEOPLASM [None]
  - CONFUSIONAL STATE [None]
  - CRYING [None]
  - DEPRESSION [None]
  - DISTURBANCE IN ATTENTION [None]
  - DYSARTHRIA [None]
  - DYSPAREUNIA [None]
  - EYE IRRITATION [None]
  - FATIGUE [None]
  - FEAR [None]
  - FEELING OF DESPAIR [None]
  - HEADACHE [None]
  - IMPAIRED WORK ABILITY [None]
  - LIBIDO DECREASED [None]
  - MENTAL DISORDER [None]
  - MIGRAINE [None]
  - MOOD ALTERED [None]
  - NIGHTMARE [None]
  - OCULAR HYPERAEMIA [None]
  - OCULAR ICTERUS [None]
  - PAIN IN JAW [None]
  - THINKING ABNORMAL [None]
  - VISUAL DISTURBANCE [None]
  - VULVOVAGINAL DRYNESS [None]
